FAERS Safety Report 24623849 (Version 1)
Quarter: 2024Q4

REPORT INFORMATION
  Report Type: Spontaneous
  Country: US (occurrence: None)
  Receive Date: 20241114
  Receipt Date: 20241114
  Transmission Date: 20250115
  Serious: No
  Sender: Public
  Company Number: None

PATIENT
  Age: 74 Year
  Sex: Female
  Weight: 54 kg

DRUGS (5)
  1. CELECOXIB [Suspect]
     Active Substance: CELECOXIB
     Indication: Procedural pain
     Dosage: OTHER QUANTITY : 1 TABLET(S);?FREQUENCY : TWICE A DAY;?
     Route: 048
     Dates: start: 20241104, end: 20241111
  2. GABAPENTIN [Concomitant]
     Active Substance: GABAPENTIN
  3. TYLENOL [Concomitant]
     Active Substance: ACETAMINOPHEN
  4. ASPIRIN [Concomitant]
     Active Substance: ASPIRIN
  5. ALLEGRA [Concomitant]
     Active Substance: FEXOFENADINE HYDROCHLORIDE

REACTIONS (4)
  - Abdominal distension [None]
  - Flatulence [None]
  - Diplopia [None]
  - Melaena [None]

NARRATIVE: CASE EVENT DATE: 20241111
